FAERS Safety Report 6501734-5 (Version None)
Quarter: 2009Q4

REPORT INFORMATION
  Report Type: 
  Country: None (occurrence: None)
  Receive Date: 20091207
  Receipt Date: 20091125
  Transmission Date: 20100525
  Serious: Yes (Hospitalization, Other)
  Sender: FDA-Public Use
  Company Number: WAES 0911USA04719

PATIENT
  Age: 61 Year
  Sex: Male
  Weight: 75.7507 kg

DRUGS (8)
  1. CAP VORINOSTAT [Suspect]
     Indication: MULTIPLE MYELOMA
     Dosage: 400 MG/ DAILY/ PO
     Route: 048
     Dates: start: 20091105, end: 20091112
  2. VELCADE [Suspect]
     Indication: MULTIPLE MYELOMA
     Dosage: 2.5 MG/Q4D/IV
     Route: 042
     Dates: start: 20091102, end: 20091112
  3. DOXIL [Suspect]
     Indication: MULTIPLE MYELOMA
     Dosage: 57 MG/ DAILY/ IV
     Route: 042
     Dates: start: 20091105, end: 20091105
  4. AMBIEN [Concomitant]
  5. CRESTOR [Concomitant]
  6. VALTREX [Concomitant]
  7. ASPIRIN [Concomitant]
  8. PYRIDOXINE [Concomitant]

REACTIONS (11)
  - ATRIAL FLUTTER [None]
  - CHILLS [None]
  - DIARRHOEA [None]
  - DIZZINESS [None]
  - DYSPNOEA [None]
  - EXERCISE TOLERANCE DECREASED [None]
  - FATIGUE [None]
  - INFLUENZA LIKE ILLNESS [None]
  - NAUSEA [None]
  - ORTHOPNOEA [None]
  - VOMITING [None]
